FAERS Safety Report 4685965-5 (Version None)
Quarter: 2005Q2

REPORT INFORMATION
  Report Type: 
  Country: None (occurrence: None)
  Receive Date: 20050606
  Receipt Date: 20050523
  Transmission Date: 20051028
  Serious: Yes (Hospitalization, Other)
  Sender: FDA-Public Use
  Company Number: 2005S1000084

PATIENT
  Age: 73 Year
  Sex: Male
  Weight: 109 kg

DRUGS (10)
  1. CUBICIN [Suspect]
     Indication: ARTHRITIS INFECTIVE
     Dosage: 4 MG/KG; Q24H; IV
     Route: 042
     Dates: start: 20041101, end: 20050401
  2. WARFARIN SODIUM [Concomitant]
  3. SERTRALINE HCL [Concomitant]
  4. GABAPENTIN [Concomitant]
  5. LISINOPRIL [Concomitant]
  6. METOPROLOL [Concomitant]
  7. MULTI-VITAMIN [Concomitant]
  8. TRAMADOL [Concomitant]
  9. TRAZODONE [Concomitant]
  10. VICODIN [Concomitant]

REACTIONS (8)
  - ARTHRALGIA [None]
  - ARTHRITIS INFECTIVE [None]
  - CULTURE WOUND POSITIVE [None]
  - JOINT SWELLING [None]
  - LEG AMPUTATION [None]
  - PATHOGEN RESISTANCE [None]
  - STAPHYLOCOCCAL INFECTION [None]
  - WOUND INFECTION [None]
